FAERS Safety Report 9463630 (Version 3)
Quarter: 2013Q4

REPORT INFORMATION
  Report Type: Report from Study
  Country: US (occurrence: US)
  Receive Date: 20130819
  Receipt Date: 20131016
  Transmission Date: 20140711
  Serious: Yes (Other)
  Sender: FDA-Public Use
  Company Number: PHEH2013US016363

PATIENT
  Age: 65 Year
  Sex: Male

DRUGS (7)
  1. TASIGNA [Suspect]
     Indication: CHRONIC MYELOID LEUKAEMIA
     Dosage: 400 MG, BID
     Route: 048
     Dates: start: 201305, end: 20130617
  2. TASIGNA [Suspect]
     Dosage: 400 MG DAILY
     Route: 048
     Dates: start: 20130708
  3. LISINOPRIL [Concomitant]
     Indication: HYPERTENSION
     Dosage: 50 MG DAILY
  4. GLIMEPIRIDE [Concomitant]
     Indication: TYPE 2 DIABETES MELLITUS
     Dosage: 1 MG, BID
  5. SYNTHROID [Concomitant]
     Indication: HYPOTHYROIDISM
     Dosage: 50 UG, DAILY
  6. CRESTOR [Concomitant]
     Indication: HYPERTENSION
     Dosage: 10 MG DAILY
  7. ACTOPLUS MET [Concomitant]
     Dosage: DAILY

REACTIONS (4)
  - Pancreatitis [Recovered/Resolved]
  - Chronic myeloid leukaemia [Unknown]
  - Malignant neoplasm progression [Unknown]
  - Lipase increased [Unknown]
